FAERS Safety Report 23134376 (Version 1)
Quarter: 2023Q4

REPORT INFORMATION
  Report Type: Spontaneous
  Country: US (occurrence: US)
  Receive Date: 20231101
  Receipt Date: 20231101
  Transmission Date: 20240109
  Serious: Yes (Other)
  Sender: FDA-Public Use
  Company Number: US-PFIZER INC-PV202300177006

PATIENT
  Age: 50 Year
  Sex: Female

DRUGS (1)
  1. LINEZOLID [Suspect]
     Active Substance: LINEZOLID
     Dosage: UNK

REACTIONS (5)
  - Thrombophlebitis septic [Unknown]
  - Mycobacterium chelonae infection [Unknown]
  - Superficial vein thrombosis [Unknown]
  - Bone graft [Unknown]
  - Liposuction [Unknown]

NARRATIVE: CASE EVENT DATE: 20230101
